FAERS Safety Report 6679110-4 (Version None)
Quarter: 2010Q2

REPORT INFORMATION
  Report Type: 
  Country: None (occurrence: None)
  Receive Date: 20100402
  Receipt Date: 20091012
  Transmission Date: 20101027
  Serious: Yes (Life-Threatening, Hospitalization, Disabling)
  Sender: FDA-Public Use
  Company Number: 2009261668

PATIENT
  Sex: Male

DRUGS (1)
  1. ARGATROBAN [Suspect]
     Indication: HEPARIN-INDUCED THROMBOCYTOPENIA
     Dosage: 4 MCG/KG/MIN, INTRAVENOUS
     Route: 042
     Dates: start: 20090801, end: 20090827

REACTIONS (1)
  - DRUG INEFFECTIVE [None]
